FAERS Safety Report 15193071 (Version 2)
Quarter: 2018Q3

REPORT INFORMATION
  Report Type: Report from Study
  Country: None (occurrence: US)
  Receive Date: 20180725
  Receipt Date: 20180903
  Transmission Date: 20181010
  Serious: Yes (Hospitalization, Other)
  Sender: FDA-Public Use
  Company Number: US-ABBVIE-18K-163-2426474-00

PATIENT
  Age: 39 Year
  Sex: Male
  Weight: 93.98 kg

DRUGS (2)
  1. HUMIRA [Suspect]
     Active Substance: ADALIMUMAB
     Indication: CROHN^S DISEASE
     Route: 058
     Dates: start: 2015, end: 201806
  2. HUMIRA [Suspect]
     Active Substance: ADALIMUMAB
     Route: 058
     Dates: start: 201808

REACTIONS (5)
  - Rectal discharge [Recovering/Resolving]
  - Defaecation urgency [Recovering/Resolving]
  - Procedural complication [Recovering/Resolving]
  - Gastrointestinal wall thickening [Recovered/Resolved]
  - Ureteric injury [Recovering/Resolving]

NARRATIVE: CASE EVENT DATE: 201801
